FAERS Safety Report 8055185-5 (Version None)
Quarter: 2012Q1

REPORT INFORMATION
  Report Type: 
  Country: None (occurrence: None)
  Receive Date: 20120119
  Receipt Date: 20120116
  Transmission Date: 20120608
  Serious: Yes (Death)
  Sender: FDA-Public Use
  Company Number: PHHY2010CA51975

PATIENT
  Sex: Female
  Weight: 63.039 kg

DRUGS (4)
  1. RIVASTIGMINE [Suspect]
     Indication: DEMENTIA ALZHEIMER'S TYPE
     Dosage: 4.6 MG\24H
     Route: 062
     Dates: start: 20100211
  2. RIVASTIGMINE [Suspect]
     Dosage: UNK
     Route: 062
     Dates: start: 20100515
  3. RIVASTIGMINE [Suspect]
     Dosage: 18 MG, DAILY
     Route: 062
  4. MEMANTINE HYDROCHLORIDE [Concomitant]
     Indication: DEMENTIA ALZHEIMER'S TYPE
     Dosage: 100 MG, UNK
     Dates: end: 20090825

REACTIONS (3)
  - DEATH [None]
  - ACTIVITIES OF DAILY LIVING IMPAIRED [None]
  - ABNORMAL BEHAVIOUR [None]
